FAERS Safety Report 26142619 (Version 1)
Quarter: 2025Q4

REPORT INFORMATION
  Report Type: Spontaneous
  Country: US (occurrence: US)
  Receive Date: 20251211
  Receipt Date: 20251211
  Transmission Date: 20260117
  Serious: Yes (Hospitalization)
  Sender: ELI LILLY AND COMPANY
  Company Number: US-MLMSERVICE-20251201-PI732267-00153-1

PATIENT
  Age: 76 Year
  Sex: Female

DRUGS (6)
  1. FLUOXETINE HYDROCHLORIDE [Suspect]
     Active Substance: FLUOXETINE HYDROCHLORIDE
     Indication: Antidepressant therapy
     Dosage: UNK, UNKNOWN
     Route: 065
  2. SULFAMETHOXAZOLE\TRIMETHOPRIM [Concomitant]
     Active Substance: SULFAMETHOXAZOLE\TRIMETHOPRIM
     Dosage: UNK UNK, UNKNOWN
     Route: 065
  3. MINOCYCLINE [Concomitant]
     Active Substance: MINOCYCLINE HYDROCHLORIDE
     Dosage: UNK, UNKNOWN
     Route: 065
  4. FIDAXOMICIN [Concomitant]
     Active Substance: FIDAXOMICIN
     Dosage: UNK, UNKNOWN
     Route: 065
  5. VANCOMYCIN [Concomitant]
     Active Substance: VANCOMYCIN
     Dosage: UNK, UNKNOWN
     Route: 065
  6. POSACONAZOLE [Concomitant]
     Active Substance: POSACONAZOLE
     Dosage: UNK, UNKNOWN
     Route: 065

REACTIONS (2)
  - Toxicity to various agents [Recovering/Resolving]
  - Nausea [Recovering/Resolving]
